FAERS Safety Report 24927505 (Version 3)
Quarter: 2025Q1

REPORT INFORMATION
  Report Type: Spontaneous
  Country: JP (occurrence: JP)
  Receive Date: 20250205
  Receipt Date: 20250305
  Transmission Date: 20250408
  Serious: No
  Sender: ABBVIE
  Company Number: JP-TAKEDA-2025TJP001236

PATIENT
  Age: 75 Year
  Sex: Male

DRUGS (2)
  1. LEUPLIN [Suspect]
     Active Substance: LEUPROLIDE ACETATE
     Indication: Prostate cancer recurrent
     Dosage: LEUPLIN SR FOR INJECTION KIT 11.25 MG
     Route: 058
     Dates: start: 20240801
  2. CRESTOR [Concomitant]
     Active Substance: ROSUVASTATIN CALCIUM
     Indication: Hyperlipidaemia
     Dosage: 2.5 MILLIGRAM, QD
     Route: 048

REACTIONS (1)
  - Eosinophilia [Recovered/Resolved]

NARRATIVE: CASE EVENT DATE: 20240929
